FAERS Safety Report 9684832 (Version 2)
Quarter: 2014Q1

REPORT INFORMATION
  Report Type: Spontaneous
  Country: ZA (occurrence: ZA)
  Receive Date: 20131112
  Receipt Date: 20140213
  Transmission Date: 20141002
  Serious: Yes (Hospitalization, Disabling, Other)
  Sender: FDA-Public Use
  Company Number: PHHY2013ZA128715

PATIENT
  Age: 49 Year
  Sex: Male

DRUGS (7)
  1. TEGRETOL [Suspect]
     Indication: ASTHENIA
     Dosage: 200 MG, BID
     Dates: start: 201302
  2. TEGRETOL [Interacting]
     Indication: OFF LABEL USE
     Dosage: 400 MG, BID
  3. TDF [Interacting]
     Dosage: 300 MG, AT NIGHT
  4. TC [Interacting]
     Dosage: 300 MG, AT NIGHT
  5. ASPEN TENOFOVIR [Interacting]
     Dosage: 300 MG, AT NIGHT
  6. EFAVIRENZ [Interacting]
     Dosage: 600 MG, QD
  7. LAMIVUDINE [Interacting]
     Dosage: 300 MG, QD

REACTIONS (4)
  - Cerebrovascular accident [Not Recovered/Not Resolved]
  - Loss of consciousness [Unknown]
  - Hemiparesis [Unknown]
  - Inhibitory drug interaction [Unknown]
